FAERS Safety Report 25862519 (Version 1)
Quarter: 2025Q3

REPORT INFORMATION
  Report Type: Spontaneous
  Country: US (occurrence: US)
  Receive Date: 20250930
  Receipt Date: 20250930
  Transmission Date: 20251021
  Serious: No
  Sender: Kenvue
  Company Number: US-KENVUE-20250901766

PATIENT
  Age: 31 Year
  Sex: Female

DRUGS (6)
  1. TYLENOL [Suspect]
     Active Substance: ACETAMINOPHEN
     Indication: Eye pain
     Route: 065
     Dates: start: 202508
  2. TYLENOL [Suspect]
     Active Substance: ACETAMINOPHEN
     Indication: Migraine
  3. REMODULIN [Concomitant]
     Active Substance: TREPROSTINIL
     Indication: Pulmonary arterial hypertension
     Route: 042
     Dates: start: 202103
  4. REMODULIN [Concomitant]
     Active Substance: TREPROSTINIL
     Route: 042
  5. OPSUMIT [Concomitant]
     Active Substance: MACITENTAN
     Indication: Product used for unknown indication
     Route: 065
  6. WINREVAIR [Concomitant]
     Active Substance: SOTATERCEPT-CSRK
     Indication: Product used for unknown indication
     Route: 065

REACTIONS (1)
  - Eye pain [Not Recovered/Not Resolved]

NARRATIVE: CASE EVENT DATE: 20250801
